FAERS Safety Report 8528331 (Version 2)
Quarter: 2013Q1

REPORT INFORMATION
  Report Type: Spontaneous
  Country: DK (occurrence: None)
  Receive Date: 20120417
  Receipt Date: 20130204
  Transmission Date: 20140127
  Serious: Yes (Hospitalization)
  Sender: FDA-Public Use
  Company Number: 2012-001394

PATIENT
  Age: 22 Year
  Sex: Male

DRUGS (4)
  1. ASACOL [Suspect]
     Dosage: ORAL
     Route: 048
     Dates: start: 200302, end: 20070212
  2. PENTASA [Suspect]
     Dosage: ORAL
     Route: 048
     Dates: start: 20010529
  3. OXCARBAZEPINE [Concomitant]
  4. CORTISONE (CORITSONE) [Concomitant]

REACTIONS (6)
  - HYDRONEPHROSIS [None]
  - GLOMERULONEPHRITIS CHRONIC [None]
  - HAEMOGLOBIN DECREASED [None]
  - BLOOD CREATININE INCREASED [None]
  - RENAL IMPAIRMENT [None]
  - HAEMODIALYSIS [None]
